FAERS Safety Report 9563803 (Version 1)
Quarter: 2013Q3

REPORT INFORMATION
  Report Type: Spontaneous
  Country: US (occurrence: None)
  Receive Date: 20130926
  Receipt Date: 20130926
  Transmission Date: 20140515
  Serious: Yes (Other)
  Sender: FDA-Public Use
  Company Number: FK201304287

PATIENT
  Sex: Male
  Weight: 3.05 kg

DRUGS (3)
  1. FUROSEMIDE [Suspect]
     Indication: POLYURIA
  2. ALDACTONE [Suspect]
     Indication: POLYURIA
  3. ENALAPRIL [Suspect]
     Indication: INCREASED VENTRICULAR AFTERLOAD
     Dosage: POD 11 -
     Route: 048

REACTIONS (3)
  - Renal failure acute [None]
  - Cardiac disorder [None]
  - Neonatal hypotension [None]
